FAERS Safety Report 8901944 (Version 1)
Quarter: 2012Q4

REPORT INFORMATION
  Report Type: Spontaneous
  Country: US (occurrence: None)
  Receive Date: 20121109
  Receipt Date: 20121109
  Transmission Date: 20130627
  Serious: Yes (Other)
  Sender: FDA-Public Use
  Company Number: None

PATIENT
  Age: 37 Year
  Sex: Female
  Weight: 62.14 kg

DRUGS (1)
  1. VANIQA [Suspect]
     Indication: HAIR GROWTH INCREASED
     Dosage: Small smear on the area
     Dates: start: 20120323, end: 20120528

REACTIONS (2)
  - Rectal discharge [None]
  - Vaginal discharge [None]
